FAERS Safety Report 6196249-0 (Version None)
Quarter: 2009Q2

REPORT INFORMATION
  Report Type: 
  Country: None (occurrence: None)
  Receive Date: 20090520
  Receipt Date: 20090515
  Transmission Date: 20091009
  Serious: Yes (Hospitalization)
  Sender: FDA-Public Use
  Company Number: BR-ABBOTT-09P-020-0573790-00

PATIENT
  Age: 49 Year
  Sex: Female

DRUGS (2)
  1. WARFARIN SODIUM [Suspect]
     Indication: DEEP VEIN THROMBOSIS
     Dosage: NOT REPORTED
  2. WARFARIN SODIUM [Suspect]
     Dosage: NOT REPORTED

REACTIONS (2)
  - ABDOMINAL COMPARTMENT SYNDROME [None]
  - RETROPERITONEAL HAEMATOMA [None]
